FAERS Safety Report 11830152 (Version 2)
Quarter: 2016Q1

REPORT INFORMATION
  Report Type: Spontaneous
  Country: US (occurrence: US)
  Receive Date: 20151214
  Receipt Date: 20160205
  Transmission Date: 20160525
  Serious: No
  Sender: FDA-Public Use
  Company Number: US-ASTRAZENECA-2015SF20820

PATIENT
  Sex: Female
  Weight: 86.2 kg

DRUGS (6)
  1. METFORMIN [Concomitant]
     Active Substance: METFORMIN HYDROCHLORIDE
  2. GLIPIZIDE. [Concomitant]
     Active Substance: GLIPIZIDE
     Dosage: ONE HALF TABLET DAILY
  3. ATORVASTATIN [Concomitant]
     Active Substance: ATORVASTATIN
  4. BYDUREON [Suspect]
     Active Substance: EXENATIDE
     Route: 058
  5. RAMIPRIL. [Concomitant]
     Active Substance: RAMIPRIL
  6. INDAPAMIDE. [Concomitant]
     Active Substance: INDAPAMIDE

REACTIONS (8)
  - Nervousness [Unknown]
  - Feeling jittery [Unknown]
  - Underdose [Unknown]
  - Blood glucose decreased [Unknown]
  - Weight decreased [Unknown]
  - Injection site bruising [Unknown]
  - Injection site nodule [Unknown]
  - Injection site haemorrhage [Unknown]
